FAERS Safety Report 16671305 (Version 2)
Quarter: 2019Q4

REPORT INFORMATION
  Report Type: Report from Study
  Country: US (occurrence: US)
  Receive Date: 20190806
  Receipt Date: 20191003
  Transmission Date: 20200122
  Serious: Yes (Other)
  Sender: FDA-Public Use
  Company Number: US-BEH-2019105090

PATIENT
  Age: 83 Year
  Sex: Female

DRUGS (1)
  1. PRIVIGEN [Suspect]
     Active Substance: HUMAN IMMUNOGLOBULIN G
     Dosage: UNK
     Route: 065
     Dates: start: 2017, end: 20190603

REACTIONS (10)
  - Anaemia [Unknown]
  - Epistaxis [Unknown]
  - Faeces discoloured [Unknown]
  - Headache [Unknown]
  - Internal haemorrhage [Unknown]
  - Fatigue [Unknown]
  - Amnesia [Unknown]
  - Chromaturia [Unknown]
  - Vision blurred [Unknown]
  - Back pain [Unknown]
